FAERS Safety Report 6743760-7 (Version None)
Quarter: 2010Q2

REPORT INFORMATION
  Report Type: 
  Country: None (occurrence: None)
  Receive Date: 20100526
  Receipt Date: 20100526
  Transmission Date: 20101027
  Serious: Yes (Other)
  Sender: FDA-Public Use
  Company Number: None

PATIENT
  Age: 40 Year
  Sex: Female
  Weight: 77.1115 kg

DRUGS (1)
  1. AVELOX [Suspect]

REACTIONS (5)
  - ACCOMMODATION DISORDER [None]
  - ARTHRALGIA [None]
  - BONE PAIN [None]
  - DEPRESSION [None]
  - EYE DISORDER [None]
